FAERS Safety Report 16134512 (Version 2)
Quarter: 2019Q2

REPORT INFORMATION
  Report Type: Report from Study
  Country: US (occurrence: US)
  Receive Date: 20190329
  Receipt Date: 20190403
  Transmission Date: 20190711
  Serious: Yes (Death, Hospitalization)
  Sender: FDA-Public Use
  Company Number: US-EISAI MEDICAL RESEARCH-EC-2019-052177

PATIENT
  Age: 62 Year
  Sex: Male
  Weight: 79 kg

DRUGS (20)
  1. FENTANYL. [Concomitant]
     Active Substance: FENTANYL
  2. ASHWAGANDHA [Concomitant]
     Active Substance: HERBALS
  3. MUSHROOM EXTRACT [Concomitant]
     Active Substance: DIETARY SUPPLEMENT
  4. N-ACETYL-L-CYSTEINE [Concomitant]
     Active Substance: ACETYLCYSTEINE
  5. PECTIN POWDER [Concomitant]
  6. CO-ENZYME [Concomitant]
  7. SELENIUM [Concomitant]
     Active Substance: SELENIUM
  8. GREEN TEA CAPSULE [Concomitant]
  9. VITAMIN C [Concomitant]
     Active Substance: ASCORBIC ACID
  10. MULTIVITAMINS [Concomitant]
     Active Substance: VITAMINS
  11. ASTRAGALUS ROOT [Concomitant]
  12. DURAGESIC [Concomitant]
     Active Substance: FENTANYL
  13. DILAUDID [Concomitant]
     Active Substance: HYDROMORPHONE HYDROCHLORIDE
  14. TURMERIC [Concomitant]
     Active Substance: HERBALS\TURMERIC
  15. ALPHA LIPOIC ACID [Concomitant]
     Active Substance: .ALPHA.-LIPOIC ACID
  16. LOSARTAN. [Concomitant]
     Active Substance: LOSARTAN
  17. LENVIMA [Suspect]
     Active Substance: LENVATINIB
     Indication: HEPATIC CANCER
     Route: 048
     Dates: start: 20190209, end: 201903
  18. MORPHINE [Concomitant]
     Active Substance: MORPHINE
  19. VITAMIN B12 [Concomitant]
     Active Substance: CYANOCOBALAMIN
  20. VITAMIN D2 [Concomitant]
     Active Substance: ERGOCALCIFEROL

REACTIONS (12)
  - Jaundice [Unknown]
  - Feeding disorder [Unknown]
  - Nausea [Unknown]
  - Abdominal pain upper [Unknown]
  - Weight decreased [Unknown]
  - Hypertension [Unknown]
  - Abdominal discomfort [Not Recovered/Not Resolved]
  - Decreased appetite [Not Recovered/Not Resolved]
  - Dehydration [Not Recovered/Not Resolved]
  - Fatigue [Not Recovered/Not Resolved]
  - Death [Fatal]
  - Malaise [Not Recovered/Not Resolved]

NARRATIVE: CASE EVENT DATE: 2019
